FAERS Safety Report 25407441 (Version 1)
Quarter: 2025Q2

REPORT INFORMATION
  Report Type: Spontaneous
  Country: SA (occurrence: None)
  Receive Date: 20250605
  Receipt Date: 20250605
  Transmission Date: 20250716
  Serious: Yes (Life-Threatening, Disabling)
  Sender: FDA-CTU
  Company Number: None

PATIENT
  Age: 23 Year
  Sex: Male
  Weight: 70 kg

DRUGS (8)
  1. STELARA [Suspect]
     Active Substance: USTEKINUMAB
  2. METHOTREXATE [Concomitant]
     Active Substance: METHOTREXATE
  3. PREDNISOLONE [Concomitant]
     Active Substance: PREDNISOLONE
  4. INDERAL [Concomitant]
     Active Substance: PROPRANOLOL HYDROCHLORIDE
  5. Aimitryptylin [Concomitant]
  6. Vexal [Concomitant]
  7. xr [Concomitant]
  8. Pitacetam Nurtec [Concomitant]

REACTIONS (1)
  - Myocardial infarction [None]

NARRATIVE: CASE EVENT DATE: 20250601
